FAERS Safety Report 20401045 (Version 2)
Quarter: 2022Q1

REPORT INFORMATION
  Report Type: Spontaneous
  Country: US (occurrence: US)
  Receive Date: 20220131
  Receipt Date: 20220201
  Transmission Date: 20220423
  Serious: No
  Sender: FDA-Public Use
  Company Number: US-ABBVIE-21K-163-4017416-00

PATIENT
  Age: 78 Year
  Sex: Male
  Weight: 97.610 kg

DRUGS (7)
  1. HUMIRA [Suspect]
     Active Substance: ADALIMUMAB
     Indication: Crohn^s disease
     Route: 058
     Dates: start: 202005
  2. METOPROLOL [Concomitant]
     Active Substance: METOPROLOL
     Indication: Blood pressure measurement
  3. TAMSULOSIN [Concomitant]
     Active Substance: TAMSULOSIN
     Indication: Respiratory disorder
  4. FOLIC ACID [Concomitant]
     Active Substance: FOLIC ACID
     Indication: Supplementation therapy
  5. PAROXETINE [Concomitant]
     Active Substance: PAROXETINE
     Indication: Anxiety
  6. MODERNA COVID-19 VACCINE [Concomitant]
     Active Substance: ELASOMERAN
     Indication: COVID-19 immunisation
     Dosage: MODERNA
     Route: 030
     Dates: start: 20210221, end: 20210221
  7. MODERNA COVID-19 VACCINE [Concomitant]
     Active Substance: ELASOMERAN
     Dosage: MODERNA
     Route: 030
     Dates: start: 20210321, end: 20210321

REACTIONS (1)
  - Constipation [Not Recovered/Not Resolved]

NARRATIVE: CASE EVENT DATE: 20210501
